FAERS Safety Report 9657863 (Version 1)
Quarter: 2013Q4

REPORT INFORMATION
  Report Type: Spontaneous
  Country: AU (occurrence: AU)
  Receive Date: 20131030
  Receipt Date: 20131030
  Transmission Date: 20140711
  Serious: Yes (Life-Threatening)
  Sender: FDA-Public Use
  Company Number: AU-ACTAVIS-2013-19413

PATIENT
  Sex: Male

DRUGS (6)
  1. CLARAC [Suspect]
     Indication: LOWER RESPIRATORY TRACT INFECTION
     Dosage: 250 MG, BID
     Route: 048
     Dates: start: 201309, end: 20131016
  2. MOXONIDINE [Concomitant]
     Indication: PRODUCT USED FOR UNKNOWN INDICATION
     Dosage: UNK
  3. LERCANIDIPINE [Concomitant]
     Indication: PRODUCT USED FOR UNKNOWN INDICATION
     Dosage: UNK
  4. BICOR                              /00188902/ [Concomitant]
     Indication: PRODUCT USED FOR UNKNOWN INDICATION
     Dosage: UNK
  5. PLAVIX [Concomitant]
     Indication: PRODUCT USED FOR UNKNOWN INDICATION
     Dosage: UNK
  6. FRUSID [Concomitant]
     Indication: PRODUCT USED FOR UNKNOWN INDICATION
     Dosage: UNK

REACTIONS (5)
  - Oral pain [Recovering/Resolving]
  - Ageusia [Recovering/Resolving]
  - Angioedema [Recovering/Resolving]
  - Dysphagia [Recovering/Resolving]
  - Drug ineffective [Recovering/Resolving]
